FAERS Safety Report 16735719 (Version 1)
Quarter: 2019Q3

REPORT INFORMATION
  Report Type: Spontaneous
  Country: US (occurrence: US)
  Receive Date: 20190823
  Receipt Date: 20190823
  Transmission Date: 20191005
  Serious: No
  Sender: FDA-Public Use
  Company Number: US-PFIZER INC-2019358898

PATIENT
  Age: 58 Year
  Sex: Male
  Weight: 83.91 kg

DRUGS (1)
  1. CHANTIX [Suspect]
     Active Substance: VARENICLINE TARTRATE
     Indication: TOBACCO ABUSE
     Dosage: UNK (AS DIRECTED)
     Dates: start: 201907, end: 201908

REACTIONS (5)
  - Retching [Recovered/Resolved]
  - Chills [Recovered/Resolved]
  - Somnolence [Recovered/Resolved]
  - Peripheral swelling [Unknown]
  - Dizziness [Recovered/Resolved]

NARRATIVE: CASE EVENT DATE: 201907
